FAERS Safety Report 6715668-4 (Version None)
Quarter: 2010Q2

REPORT INFORMATION
  Report Type: 
  Country: None (occurrence: None)
  Receive Date: 20100507
  Receipt Date: 20090320
  Transmission Date: 20101027
  Serious: No
  Sender: FDA-Public Use
  Company Number: A0775410A

PATIENT
  Sex: Female

DRUGS (1)
  1. DYNACIRC CR [Suspect]
     Indication: DRUG USE FOR UNKNOWN INDICATION
     Dosage: 5MG PER DAY

REACTIONS (4)
  - HEADACHE [None]
  - OEDEMA [None]
  - OEDEMA PERIPHERAL [None]
  - RASH MACULAR [None]
